FAERS Safety Report 10447377 (Version 2)
Quarter: 2014Q3

REPORT INFORMATION
  Report Type: Spontaneous
  Country: US (occurrence: US)
  Receive Date: 20140911
  Receipt Date: 20140911
  Transmission Date: 20150326
  Serious: No
  Sender: FDA-Public Use
  Company Number: US-BEH-2011027589

PATIENT
  Age: 45 Year
  Sex: Female
  Weight: 90 kg

DRUGS (64)
  1. ZEMAIRA [Suspect]
     Active Substance: .ALPHA.1-PROTEINASE INHIBITOR HUMAN
     Dosage: INFUSED AT A RATE OF 6.9ML/MIN
     Route: 042
     Dates: start: 20070201
  2. ZEMAIRA [Suspect]
     Active Substance: .ALPHA.1-PROTEINASE INHIBITOR HUMAN
     Route: 042
     Dates: start: 20110222
  3. ZEMAIRA [Suspect]
     Active Substance: .ALPHA.1-PROTEINASE INHIBITOR HUMAN
     Route: 042
     Dates: start: 20110614
  4. ZEMAIRA [Suspect]
     Active Substance: .ALPHA.1-PROTEINASE INHIBITOR HUMAN
     Route: 042
     Dates: start: 20110726
  5. ZEMAIRA [Suspect]
     Active Substance: .ALPHA.1-PROTEINASE INHIBITOR HUMAN
     Dates: start: 20111025, end: 20111025
  6. ZEMAIRA [Suspect]
     Active Substance: .ALPHA.1-PROTEINASE INHIBITOR HUMAN
     Dates: start: 20111108
  7. ZEMAIRA [Suspect]
     Active Substance: .ALPHA.1-PROTEINASE INHIBITOR HUMAN
     Dosage: 0.08 ML PER KG PER MIN
     Route: 042
  8. EPIPEN [Concomitant]
     Active Substance: EPINEPHRINE
     Indication: PREMEDICATION
  9. OXYGEN. [Concomitant]
     Active Substance: OXYGEN
  10. ZEMAIRA [Suspect]
     Active Substance: .ALPHA.1-PROTEINASE INHIBITOR HUMAN
     Route: 042
     Dates: start: 20110802, end: 20110816
  11. ZEMAIRA [Suspect]
     Active Substance: .ALPHA.1-PROTEINASE INHIBITOR HUMAN
     Route: 042
     Dates: start: 20110823, end: 20110906
  12. ZEMAIRA [Suspect]
     Active Substance: .ALPHA.1-PROTEINASE INHIBITOR HUMAN
  13. ZEMAIRA [Suspect]
     Active Substance: .ALPHA.1-PROTEINASE INHIBITOR HUMAN
     Dates: start: 20111025, end: 20111025
  14. ZEMAIRA [Suspect]
     Active Substance: .ALPHA.1-PROTEINASE INHIBITOR HUMAN
     Dates: start: 20111115, end: 20111115
  15. ZEMAIRA [Suspect]
     Active Substance: .ALPHA.1-PROTEINASE INHIBITOR HUMAN
     Dosage: 975 MG/VIAL
     Route: 042
     Dates: start: 20070201
  16. ZEMAIRA [Suspect]
     Active Substance: .ALPHA.1-PROTEINASE INHIBITOR HUMAN
     Dosage: 883 MG VIAL
     Route: 042
     Dates: start: 20070201
  17. ZEMAIRA [Suspect]
     Active Substance: .ALPHA.1-PROTEINASE INHIBITOR HUMAN
     Dosage: 944 MG VIAL; 0.08 ML/KG/MIN (7.3 ML/MIN)
     Route: 042
  18. ZEMAIRA [Suspect]
     Active Substance: .ALPHA.1-PROTEINASE INHIBITOR HUMAN
     Dosage: 7.3 ML PER MINUTE; 997 MG/VL
     Route: 042
  19. DICLOFENAC [Concomitant]
     Active Substance: DICLOFENAC
  20. ALBUTEROL. [Concomitant]
     Active Substance: ALBUTEROL
  21. DIPHENHYDRAMINE [Concomitant]
     Active Substance: DIPHENHYDRAMINE
     Indication: PREMEDICATION
  22. MOTRIN [Concomitant]
     Active Substance: IBUPROFEN
  23. ZYRTEC [Concomitant]
     Active Substance: CETIRIZINE HYDROCHLORIDE
  24. ZEMAIRA [Suspect]
     Active Substance: .ALPHA.1-PROTEINASE INHIBITOR HUMAN
     Route: 042
     Dates: start: 20110720
  25. ZEMAIRA [Suspect]
     Active Substance: .ALPHA.1-PROTEINASE INHIBITOR HUMAN
     Indication: ALPHA-1 ANTI-TRYPSIN DEFICIENCY
     Dates: start: 20111004, end: 20111004
  26. ZEMAIRA [Suspect]
     Active Substance: .ALPHA.1-PROTEINASE INHIBITOR HUMAN
     Dosage: 60 MG/KG (+/- 10%) 0.08 ML/KG/MINUTE
     Dates: start: 20110927
  27. ZEMAIRA [Suspect]
     Active Substance: .ALPHA.1-PROTEINASE INHIBITOR HUMAN
     Dosage: 0.08 ML PER KG PER MIN (7.2 ML PER MIN)
     Dates: start: 20111121, end: 20111121
  28. ZEMAIRA [Suspect]
     Active Substance: .ALPHA.1-PROTEINASE INHIBITOR HUMAN
     Dosage: 975 MG VIAL
     Route: 042
     Dates: start: 20070201
  29. ZEMAIRA [Suspect]
     Active Substance: .ALPHA.1-PROTEINASE INHIBITOR HUMAN
     Dosage: ??-OCT-2013
     Route: 042
  30. XANAX [Concomitant]
     Active Substance: ALPRAZOLAM
  31. LIDOCAINE PRILOCAINE [Concomitant]
     Indication: PREMEDICATION
  32. ZEMAIRA [Suspect]
     Active Substance: .ALPHA.1-PROTEINASE INHIBITOR HUMAN
     Route: 042
     Dates: start: 20110417
  33. ZEMAIRA [Suspect]
     Active Substance: .ALPHA.1-PROTEINASE INHIBITOR HUMAN
     Route: 042
     Dates: start: 20110720
  34. ADVAIR HFA [Concomitant]
     Active Substance: FLUTICASONE PROPIONATE\SALMETEROL XINAFOATE
     Dosage: 500-50 DISKUS
  35. BUTALBITAL, ACETOMINOPHEN AND CAFFEINE [Concomitant]
     Active Substance: ACETAMINOPHEN\BUTALBITAL\CAFFEINE
     Dosage: 50-325-40
  36. ANTACIDS [Concomitant]
     Active Substance: UNSPECIFIED INGREDIENT
  37. ZEMAIRA [Suspect]
     Active Substance: .ALPHA.1-PROTEINASE INHIBITOR HUMAN
     Route: 042
     Dates: start: 20110712
  38. ZEMAIRA [Suspect]
     Active Substance: .ALPHA.1-PROTEINASE INHIBITOR HUMAN
     Route: 042
     Dates: start: 20110726
  39. ZEMAIRA [Suspect]
     Active Substance: .ALPHA.1-PROTEINASE INHIBITOR HUMAN
  40. ZEMAIRA [Suspect]
     Active Substance: .ALPHA.1-PROTEINASE INHIBITOR HUMAN
     Dates: start: 20111115, end: 20111115
  41. ZEMAIRA [Suspect]
     Active Substance: .ALPHA.1-PROTEINASE INHIBITOR HUMAN
  42. ZEMAIRA [Suspect]
     Active Substance: .ALPHA.1-PROTEINASE INHIBITOR HUMAN
     Dosage: 883 MG/VIAL
     Route: 042
     Dates: start: 20070201
  43. ZEMAIRA [Suspect]
     Active Substance: .ALPHA.1-PROTEINASE INHIBITOR HUMAN
     Dosage: 7.3 ML PER MIN
     Route: 042
     Dates: start: 20131029
  44. ZEMAIRA [Suspect]
     Active Substance: .ALPHA.1-PROTEINASE INHIBITOR HUMAN
     Dosage: 7.3 ML PER MINUTE
     Route: 042
  45. ZEMAIRA [Suspect]
     Active Substance: .ALPHA.1-PROTEINASE INHIBITOR HUMAN
     Dosage: 7.3 ML PER MINUTE; 969 MG/VL
     Route: 042
  46. SODIUM CHLORIDE. [Concomitant]
     Active Substance: SODIUM CHLORIDE
     Indication: PREMEDICATION
  47. ZEMAIRA [Suspect]
     Active Substance: .ALPHA.1-PROTEINASE INHIBITOR HUMAN
     Dosage: 978 MG/VIAL; 7.5 ML/MIN
     Route: 042
     Dates: start: 20130227, end: 20130227
  48. ZEMAIRA [Suspect]
     Active Substance: .ALPHA.1-PROTEINASE INHIBITOR HUMAN
  49. RANITIDINE [Concomitant]
     Active Substance: RANITIDINE\RANITIDINE HYDROCHLORIDE
  50. TYLENOL [Concomitant]
     Active Substance: ACETAMINOPHEN
  51. TUSSIGON [Concomitant]
     Active Substance: HOMATROPINE METHYLBROMIDE\HYDROCODONE BITARTRATE
  52. EPINEPHRINE. [Concomitant]
     Active Substance: EPINEPHRINE
  53. ZEMAIRA [Suspect]
     Active Substance: .ALPHA.1-PROTEINASE INHIBITOR HUMAN
     Route: 042
     Dates: start: 20110125
  54. ZEMAIRA [Suspect]
     Active Substance: .ALPHA.1-PROTEINASE INHIBITOR HUMAN
     Route: 042
     Dates: start: 20110405
  55. ZEMAIRA [Suspect]
     Active Substance: .ALPHA.1-PROTEINASE INHIBITOR HUMAN
     Route: 042
     Dates: start: 20110614
  56. ZEMAIRA [Suspect]
     Active Substance: .ALPHA.1-PROTEINASE INHIBITOR HUMAN
     Route: 042
     Dates: start: 20110802, end: 20110816
  57. ZEMAIRA [Suspect]
     Active Substance: .ALPHA.1-PROTEINASE INHIBITOR HUMAN
     Dosage: 7.3 ML/MIN
     Route: 042
     Dates: start: 20130813, end: 20130813
  58. ZEMAIRA [Suspect]
     Active Substance: .ALPHA.1-PROTEINASE INHIBITOR HUMAN
     Dosage: 7.3.ML/MIN
     Route: 042
     Dates: start: 20130913, end: 20130913
  59. ZEMAIRA [Suspect]
     Active Substance: .ALPHA.1-PROTEINASE INHIBITOR HUMAN
     Dosage: 965 MG/VIAL
     Route: 042
  60. ZEMAIRA [Suspect]
     Active Substance: .ALPHA.1-PROTEINASE INHIBITOR HUMAN
     Dosage: 7.3 ML PER MINUTE; 973 MG VIAL
     Route: 042
  61. ZEMAIRA [Suspect]
     Active Substance: .ALPHA.1-PROTEINASE INHIBITOR HUMAN
     Dosage: 7.2 ML PER MINUTE; 942 MG/VL
     Route: 042
  62. ZEMAIRA [Suspect]
     Active Substance: .ALPHA.1-PROTEINASE INHIBITOR HUMAN
     Route: 042
  63. HEPARIN [Concomitant]
     Active Substance: HEPARIN SODIUM
     Dosage: UNITS/ML
  64. HYDROCODONE ACETAMINOPHEN [Concomitant]
     Active Substance: ACETAMINOPHEN\HYDROCODONE BITARTRATE
     Dosage: 5-500

REACTIONS (51)
  - Fatigue [Unknown]
  - Headache [Recovered/Resolved]
  - Headache [Recovered/Resolved]
  - Headache [Recovering/Resolving]
  - Headache [Recovered/Resolved]
  - Fatigue [Unknown]
  - Headache [Unknown]
  - Fatigue [Unknown]
  - Headache [Unknown]
  - Fatigue [Unknown]
  - Headache [Recovered/Resolved]
  - Headache [Recovered/Resolved]
  - Headache [Unknown]
  - Headache [Unknown]
  - Fatigue [Recovered/Resolved]
  - Headache [Recovered/Resolved]
  - Headache [Recovered/Resolved]
  - Headache [Unknown]
  - Fatigue [Recovered/Resolved]
  - Headache [Recovered/Resolved]
  - Headache [Recovered/Resolved]
  - Headache [Unknown]
  - Fatigue [Unknown]
  - Fatigue [Unknown]
  - Fatigue [Recovered/Resolved]
  - Headache [Recovered/Resolved]
  - Headache [Unknown]
  - Headache [Recovered/Resolved]
  - Headache [Recovered/Resolved]
  - Headache [Unknown]
  - Headache [Recovered/Resolved]
  - Headache [Recovered/Resolved]
  - Headache [Unknown]
  - Fatigue [Unknown]
  - Headache [Unknown]
  - Headache [Recovered/Resolved]
  - Headache [Recovered/Resolved]
  - Headache [Unknown]
  - Headache [Unknown]
  - Fatigue [Unknown]
  - Fatigue [Unknown]
  - Headache [Recovered/Resolved]
  - Headache [Recovered/Resolved]
  - Headache [Unknown]
  - Headache [Recovered/Resolved]
  - Headache [Recovered/Resolved]
  - Headache [Recovered/Resolved]
  - Headache [Not Recovered/Not Resolved]
  - Headache [Recovered/Resolved]
  - Headache [Not Recovered/Not Resolved]
  - Headache [Unknown]

NARRATIVE: CASE EVENT DATE: 20100628
